FAERS Safety Report 11229157 (Version 2)
Quarter: 2015Q4

REPORT INFORMATION
  Report Type: Spontaneous
  Country: US (occurrence: US)
  Receive Date: 20150630
  Receipt Date: 20151123
  Transmission Date: 20160304
  Serious: No
  Sender: FDA-Public Use
  Company Number: US-PFIZER INC-2015214453

PATIENT
  Age: 38 Year
  Sex: Female

DRUGS (1)
  1. LYRICA [Suspect]
     Active Substance: PREGABALIN
     Indication: FIBROMYALGIA
     Dosage: UNK

REACTIONS (4)
  - Pain [Unknown]
  - Muscle spasms [Unknown]
  - Fibromyalgia [Unknown]
  - Condition aggravated [Unknown]

NARRATIVE: CASE EVENT DATE: 20151110
